FAERS Safety Report 12403090 (Version 2)
Quarter: 2016Q3

REPORT INFORMATION
  Report Type: Spontaneous
  Country: JP (occurrence: JP)
  Receive Date: 20160525
  Receipt Date: 20160705
  Transmission Date: 20161109
  Serious: Yes (Hospitalization)
  Sender: FDA-Public Use
  Company Number: JP-EISAI MEDICAL RESEARCH-EC-2016-017107

PATIENT

DRUGS (2)
  1. HALAVEN [Suspect]
     Active Substance: ERIBULIN MESYLATE
     Dosage: REDUCED DOSE
     Route: 041
     Dates: start: 20160530
  2. HALAVEN [Suspect]
     Active Substance: ERIBULIN MESYLATE
     Indication: LIPOSARCOMA
     Dosage: UNKNOWN
     Route: 041
     Dates: start: 20160509, end: 201605

REACTIONS (1)
  - Neutropenia [Recovered/Resolved]

NARRATIVE: CASE EVENT DATE: 20160523
